FAERS Safety Report 16097082 (Version 1)
Quarter: 2019Q1

REPORT INFORMATION
  Report Type: Report from Study
  Country: DE (occurrence: DE)
  Receive Date: 20190320
  Receipt Date: 20190320
  Transmission Date: 20190418
  Serious: Yes (Other)
  Sender: FDA-Public Use
  Company Number: DE-TEVA-2019-DE-1026297

PATIENT
  Age: 13 Month
  Sex: Female

DRUGS (1)
  1. PREDNISOLONE. [Suspect]
     Active Substance: PREDNISOLONE
     Indication: EPILEPSY
     Route: 065

REACTIONS (2)
  - Gastroenteritis sapovirus [Recovered/Resolved]
  - Diarrhoea [Recovered/Resolved]
